FAERS Safety Report 4834891-7 (Version None)
Quarter: 2005Q4

REPORT INFORMATION
  Report Type: 
  Country: None (occurrence: None)
  Receive Date: 20051115
  Receipt Date: 20051103
  Transmission Date: 20060501
  Serious: Yes (Other)
  Sender: FDA-Public Use
  Company Number: HQWYE424304NOV05

PATIENT

DRUGS (1)
  1. TYGACIL [Suspect]
     Dosage: 50 MG EVERY 12 HOURS, INTRAVENOUS
     Route: 042

REACTIONS (1)
  - PANCREATITIS [None]
